FAERS Safety Report 7450845-9 (Version None)
Quarter: 2011Q2

REPORT INFORMATION
  Report Type: 
  Country: None (occurrence: None)
  Receive Date: 20110428
  Receipt Date: 20110428
  Transmission Date: 20111010
  Serious: Yes (Other)
  Sender: FDA-Public Use
  Company Number: None

PATIENT
  Age: 32 Year
  Sex: Female
  Weight: 78.0187 kg

DRUGS (1)
  1. CREME HAIR REMOVER KIT CREME FOR FACE, UPPER LIP AND CHIN SALLY HANSEN [Suspect]

REACTIONS (3)
  - HAEMORRHAGE [None]
  - CHEMICAL INJURY [None]
  - WOUND SECRETION [None]
